FAERS Safety Report 4911912-4 (Version None)
Quarter: 2006Q1

REPORT INFORMATION
  Report Type: 
  Country: None (occurrence: None)
  Receive Date: 20060213
  Receipt Date: 20060213
  Transmission Date: 20060701
  Serious: Yes (Other)
  Sender: FDA-Public Use
  Company Number: None

PATIENT
  Sex: Female

DRUGS (2)
  1. ECONOPRED [Suspect]
     Indication: UVEITIS
     Dosage: 1 GTT OU QD
     Route: 047
     Dates: start: 20050908
  2. PREDACETATE [Suspect]
     Dosage: 1 GTT OU QD
     Route: 047
     Dates: start: 20050331

REACTIONS (2)
  - ERYTHEMA [None]
  - VISION BLURRED [None]
